FAERS Safety Report 19744252 (Version 1)
Quarter: 2021Q3

REPORT INFORMATION
  Report Type: Spontaneous
  Country: DE (occurrence: DE)
  Receive Date: 20210825
  Receipt Date: 20210825
  Transmission Date: 20211014
  Serious: Yes (Life-Threatening, Hospitalization, Other)
  Sender: FDA-Public Use
  Company Number: DE-MYLANLABS-2021M1053684

PATIENT
  Age: 71 Year
  Sex: Female

DRUGS (13)
  1. MOVICOL [Concomitant]
     Active Substance: POLYETHYLENE GLYCOL 3350\POTASSIUM CHLORIDE\SODIUM BICARBONATE\SODIUM CHLORIDE
     Dosage: 1 DOSAGE FORM, QD\, 0?1?0?0, SACHETS / GRANULES
  2. AMLODIPIN                          /00972401/ [Concomitant]
     Active Substance: AMLODIPINE BESYLATE
     Dosage: 5 MG, 1?0?0?1, TABLET
  3. FUROSEMID                          /00032601/ [Concomitant]
     Active Substance: FUROSEMIDE
     Dosage: 1.5 DOSAGE FORM, QD, 125 MG, 1?0.5?0?0, TABLETS
  4. METAMIZOL                          /06276701/ [Concomitant]
     Active Substance: METAMIZOLE
     Dosage: 60 GTT DROPS, QD, 20?20?0?20, DROPS
  5. INSULIN LISPRO [Suspect]
     Active Substance: INSULIN LISPRO
     Indication: PRODUCT USED FOR UNKNOWN INDICATION
     Dosage: ACCORDING TO PLAN, SOLUTION FOR INJECTION / INFUSION
  6. INSULIN GLARGINE [Suspect]
     Active Substance: INSULIN GLARGINE
     Indication: PRODUCT USED FOR UNKNOWN INDICATION
     Dosage: 16 IU, ACCORDING TO PLAN, SOLUTION FOR INJECTION / INFUSION
  7. GLAUPAX [Concomitant]
     Active Substance: ACETAZOLAMIDE
     Dosage: 250 MILLIGRAM, Q8H, 1?1?1?0, TABLET
  8. KALINOR                            /00279301/ [Concomitant]
     Active Substance: CITRIC ACID MONOHYDRATE\POTASSIUM BICARBONATE\POTASSIUM CITRATE
     Dosage: 2 DOSAGE FORM, QD, 1?1?0?0, EFFERVESCENT TABLETS
  9. IPRAMOL TEVA [Concomitant]
     Dosage: 0.5|0.2 MG, 1?1?1?1,AEROSOL DOSING
     Route: 055
  10. METOPROLOL. [Suspect]
     Active Substance: METOPROLOL
     Indication: PRODUCT USED FOR UNKNOWN INDICATION
     Dosage: 95 MILLIGRAM, QD (47.5 MG, 1?0?0?1, RETARD?TABLETTEN)
  11. PANTOPRAZOL                        /01263201/ [Concomitant]
     Active Substance: PANTOPRAZOLE
     Dosage: 40 MG, 1?0?0?0, TABLET
  12. SIMVASTATIN. [Concomitant]
     Active Substance: SIMVASTATIN
     Dosage: 20 MILLIGRAM, QD, 0?0?0?1, TABLET
  13. ALLOPURINOL. [Concomitant]
     Active Substance: ALLOPURINOL
     Dosage: 150 MILLIGRAM, QD (100 MG, 1.5?0?0?0, TABLET)

REACTIONS (5)
  - Dizziness [Unknown]
  - Dyspnoea [Unknown]
  - Hypoglycaemia [Unknown]
  - Bradycardia [Unknown]
  - General physical health deterioration [Unknown]
